FAERS Safety Report 8917240 (Version 1)
Quarter: 2012Q4

REPORT INFORMATION
  Report Type: Report from Study
  Country: JP (occurrence: JP)
  Receive Date: 20121120
  Receipt Date: 20121120
  Transmission Date: 20130627
  Serious: Yes (Hospitalization)
  Sender: FDA-Public Use
  Company Number: JP-VERTEX PHARMACEUTICAL INC.-AE-2012-004271

PATIENT

DRUGS (10)
  1. VX-950 (TELAPREVIR) [Suspect]
     Indication: CHRONIC HEPATITIS C
     Dosage: 1500 mg, qd
     Route: 048
     Dates: start: 20120117, end: 20120205
  2. VX-950 (TELAPREVIR) [Suspect]
     Dosage: 750 mg, qd
     Route: 048
     Dates: start: 20120508, end: 20120621
  3. RIBAVIRIN [Suspect]
     Indication: CHRONIC HEPATITIS C
     Dosage: 600 mg, qd
     Route: 048
     Dates: start: 20120117, end: 20120126
  4. RIBAVIRIN [Suspect]
     Dosage: 200 mg, qd
     Route: 048
     Dates: start: 20120127, end: 20120205
  5. RIBAVIRIN [Suspect]
     Dosage: 200 mg, qd
     Route: 048
     Dates: start: 20120508, end: 20120612
  6. RIBAVIRIN [Suspect]
     Dosage: 200 mg, 2 times a week
     Route: 048
     Dates: start: 20120613, end: 20120621
  7. PEGINTERFERON ALFA-2B [Suspect]
     Indication: CHRONIC HEPATITIS C
     Dosage: 80 ?g, qw
     Route: 058
     Dates: start: 20120117, end: 20120201
  8. PEGINTERFERON ALFA-2B [Suspect]
     Dosage: 1.8 ?g/kg, qw
     Route: 058
     Dates: start: 20120508, end: 20120620
  9. PEGINTERFERON ALFA-2B [Suspect]
     Dosage: 0.9 ?g/kg, qw
     Route: 048
     Dates: start: 20120621, end: 20120621
  10. URSO [Concomitant]
     Dosage: 600 mg, qd
     Route: 048
     Dates: start: 20120223

REACTIONS (3)
  - Renal tubular necrosis [Recovered/Resolved]
  - Anaemia [Recovered/Resolved]
  - Haemoglobin decreased [Recovered/Resolved]
